FAERS Safety Report 7137870-2 (Version None)
Quarter: 2010Q4

REPORT INFORMATION
  Report Type: 
  Country: None (occurrence: None)
  Receive Date: 20101103
  Receipt Date: 20100317
  Transmission Date: 20110411
  Serious: Yes (Hospitalization)
  Sender: FDA-Public Use
  Company Number: 2010S1000136

PATIENT
  Age: 27 Year
  Sex: Female
  Weight: 117.9 kg

DRUGS (12)
  1. CUBICIN [Suspect]
     Indication: BACTERAEMIA
     Dosage: 7.6 MG/KG;Q24H;IV
     Route: 042
     Dates: start: 20100303, end: 20100311
  2. ACETAMINOPHEN [Concomitant]
  3. HYDROXYZINE [Concomitant]
  4. ATIVAN [Concomitant]
  5. BACTRIM DS [Concomitant]
  6. ACYCLOVIR [Concomitant]
  7. CITALOPRAM HYDROBROMIDE [Concomitant]
  8. OMEPRAZOLE [Concomitant]
  9. BACITRACIN [Concomitant]
  10. ALUMINIUM HYDROXIDE GEL [Concomitant]
  11. WESTCORT [Concomitant]
  12. TRIAMCINOLONE [Concomitant]

REACTIONS (2)
  - BLOOD CREATINE PHOSPHOKINASE INCREASED [None]
  - MYALGIA [None]
